FAERS Safety Report 15379095 (Version 1)
Quarter: 2018Q3

REPORT INFORMATION
  Report Type: Spontaneous
  Country: US (occurrence: US)
  Receive Date: 20180906
  Receipt Date: 20180906
  Transmission Date: 20181010
  Serious: No
  Sender: FDA-Public Use
  Company Number: None

PATIENT
  Age: 40 Year
  Sex: Female

DRUGS (1)
  1. ENBREL [Suspect]
     Active Substance: ETANERCEPT
     Indication: SPONDYLOARTHROPATHY
     Dosage: ?          OTHER DOSE:1 PEN;?
     Route: 058
     Dates: start: 20170803

REACTIONS (3)
  - Injection site mass [None]
  - Injection site warmth [None]
  - Injection site erythema [None]

NARRATIVE: CASE EVENT DATE: 20180830
